FAERS Safety Report 24736214 (Version 1)
Quarter: 2024Q4

REPORT INFORMATION
  Report Type: Spontaneous
  Country: FR (occurrence: FR)
  Receive Date: 20241216
  Receipt Date: 20241216
  Transmission Date: 20250114
  Serious: Yes (Hospitalization)
  Sender: CHEPLAPHARM
  Company Number: FR-ROCHE-10000151084

PATIENT
  Age: 1 Month
  Sex: Female
  Weight: 3.72 kg

DRUGS (7)
  1. CLONAZEPAM [Suspect]
     Active Substance: CLONAZEPAM
     Dosage: 2 DAYS
     Route: 042
     Dates: start: 20241025, end: 20241026
  2. CLONAZEPAM [Suspect]
     Active Substance: CLONAZEPAM
     Dosage: 2 DAYS
     Route: 048
     Dates: start: 20241026, end: 20241028
  3. DIAZEPAM [Suspect]
     Active Substance: DIAZEPAM
     Indication: Epilepsy
     Dosage: 1 DAY
     Route: 042
     Dates: start: 20241026, end: 20241026
  4. TROPICAMIDE [Suspect]
     Active Substance: TROPICAMIDE
     Route: 031
     Dates: start: 20241025, end: 20241025
  5. MIDAZOLAM HYDROCHLORIDE [Suspect]
     Active Substance: MIDAZOLAM HYDROCHLORIDE
     Indication: Epilepsy
     Dosage: DAILY DOSE: 2.5 MILLIGRAM
     Route: 060
     Dates: start: 20241025, end: 20241026
  6. VALPROATE SODIUM [Suspect]
     Active Substance: VALPROATE SODIUM
     Indication: Epilepsy
     Dosage: DAILY DOSE: 80 MILLIGRAM
     Route: 048
     Dates: start: 20240919
  7. CHOLECALCIFEROL [Concomitant]
     Active Substance: CHOLECALCIFEROL
     Indication: Epilepsy

REACTIONS (6)
  - Bradycardia [Recovered/Resolved]
  - Bradypnoea [Recovered/Resolved]
  - Hypoglycaemia [Recovered/Resolved]
  - Somnolence [Recovered/Resolved]
  - Salivary hypersecretion [Recovered/Resolved]
  - Constipation [Recovered/Resolved]

NARRATIVE: CASE EVENT DATE: 20241027
